FAERS Safety Report 7750245-8 (Version None)
Quarter: 2011Q3

REPORT INFORMATION
  Report Type: 
  Country: None (occurrence: None)
  Receive Date: 20110914
  Receipt Date: 20110906
  Transmission Date: 20111222
  Serious: Yes (Other)
  Sender: FDA-Public Use
  Company Number: FR-UCBSA-012445

PATIENT
  Sex: Female

DRUGS (2)
  1. KEPPRA [Suspect]
     Indication: EPILEPSY
     Dosage: 1 UNIT DAILY
     Route: 048
  2. DEPAKENE [Concomitant]
     Indication: EPILEPSY
     Route: 048

REACTIONS (3)
  - PREGNANCY [None]
  - CAESAREAN SECTION [None]
  - PREMATURE DELIVERY [None]
